FAERS Safety Report 22119230 (Version 2)
Quarter: 2023Q2

REPORT INFORMATION
  Report Type: Spontaneous
  Country: US (occurrence: US)
  Receive Date: 20230321
  Receipt Date: 20230410
  Transmission Date: 20230722
  Serious: Yes (Life-Threatening, Hospitalization, Other)
  Sender: FDA-Public Use
  Company Number: US-Accord-304861

PATIENT
  Age: 51 Year
  Sex: Female
  Weight: 108.00 kg

DRUGS (29)
  1. CARBOPLATIN [Suspect]
     Active Substance: CARBOPLATIN
     Indication: Cervix carcinoma
     Dosage: 5 AUC, 1Q3W
     Route: 042
     Dates: start: 20221207, end: 20230302
  2. TISOTUMAB VEDOTIN [Suspect]
     Active Substance: TISOTUMAB VEDOTIN
     Indication: Cervix carcinoma
     Dosage: 1Q3W
     Route: 042
     Dates: start: 20221207, end: 20230302
  3. PEMBROLIZUMAB [Suspect]
     Active Substance: PEMBROLIZUMAB
     Indication: Cervix carcinoma
     Dosage: 1Q3W
     Route: 042
     Dates: start: 20221207
  4. BEVACIZUMAB [Suspect]
     Active Substance: BEVACIZUMAB
     Indication: Cervix carcinoma
     Dosage: 1Q3W
     Route: 042
     Dates: start: 20221207, end: 20230130
  5. ADDERALL [Concomitant]
     Active Substance: AMPHETAMINE ASPARTATE\AMPHETAMINE SULFATE\DEXTROAMPHETAMINE SACCHARATE\DEXTROAMPHETAMINE SULFATE
     Dates: start: 200505
  6. PAROXETINE [Concomitant]
     Active Substance: PAROXETINE
     Dates: start: 200609
  7. AMLODIPINE [Concomitant]
     Active Substance: AMLODIPINE BESYLATE
     Dates: start: 200505
  8. CARVEDILOL [Concomitant]
     Active Substance: CARVEDILOL
     Dates: start: 200505
  9. FLONASE [Concomitant]
     Active Substance: FLUTICASONE PROPIONATE
     Dates: start: 200504
  10. HYDROXYZINE [Concomitant]
     Active Substance: HYDROXYZINE HYDROCHLORIDE
     Dates: start: 200504
  11. MELOXICAM [Concomitant]
     Active Substance: MELOXICAM
     Dates: start: 202003
  12. ALBUTEROL [Concomitant]
     Active Substance: ALBUTEROL
     Dates: start: 200504
  13. TRAMADOL [Concomitant]
     Active Substance: TRAMADOL
     Dates: start: 202003
  14. AFRIN [Concomitant]
     Active Substance: OXYMETAZOLINE
     Dates: start: 20221214
  15. SALINE [Concomitant]
     Active Substance: SODIUM CHLORIDE
     Dates: start: 20221214
  16. LOPERAMIDE [Concomitant]
     Active Substance: LOPERAMIDE
     Dates: start: 20221209
  17. ATROPINE\DIPHENOXYLATE [Concomitant]
     Active Substance: ATROPINE\DIPHENOXYLATE
     Dates: start: 20221214
  18. ONDANSETRON [Concomitant]
     Active Substance: ONDANSETRON
     Dates: start: 20221017
  19. PROCHLORPERAZINE [Concomitant]
     Active Substance: PROCHLORPERAZINE
     Dates: start: 20221017
  20. SODIUM CHLORIDE [Concomitant]
     Active Substance: SODIUM CHLORIDE
     Dates: start: 20221209
  21. MAGNESIUM [Concomitant]
     Active Substance: MAGNESIUM
     Dates: start: 20230123
  22. PREDNISONE [Concomitant]
     Active Substance: PREDNISONE
     Dates: start: 20230208
  23. APIXABAN [Concomitant]
     Active Substance: APIXABAN
     Dates: start: 20230227, end: 20230303
  24. CEFDINIR [Concomitant]
     Active Substance: CEFDINIR
     Dates: start: 20230308, end: 20230312
  25. MELATONIN [Concomitant]
     Active Substance: MELATONIN
     Dates: start: 20230310
  26. MAGNESIUM OXIDE [Concomitant]
     Active Substance: MAGNESIUM OXIDE
     Dates: start: 20230312, end: 20230319
  27. MAGNESIUM SULFATE [Concomitant]
     Active Substance: MAGNESIUM SULFATE
     Dates: start: 20230309, end: 20230320
  28. POTASSIUM PHOSPHATES [Concomitant]
     Active Substance: POTASSIUM PHOSPHATE, DIBASIC\POTASSIUM PHOSPHATE, MONOBASIC
     Dates: start: 20230309
  29. POTASSIUM CHLORIDE [Concomitant]
     Active Substance: POTASSIUM CHLORIDE
     Dates: start: 20230310, end: 20230319

REACTIONS (3)
  - Dehydration [Recovered/Resolved]
  - Pancytopenia [Not Recovered/Not Resolved]
  - Diarrhoea [Unknown]

NARRATIVE: CASE EVENT DATE: 20230303
